FAERS Safety Report 5569533-9 (Version None)
Quarter: 2007Q4

REPORT INFORMATION
  Report Type: 
  Country: None (occurrence: None)
  Receive Date: 20071220
  Receipt Date: 20071214
  Transmission Date: 20080405
  Serious: Yes (Other)
  Sender: FDA-Public Use
  Company Number: US-GILEAD-2007-0014645

PATIENT
  Sex: Male
  Weight: 93.07 kg

DRUGS (17)
  1. LETAIRIS [Suspect]
     Indication: PULMONARY HYPERTENSION
     Route: 048
     Dates: start: 20071031, end: 20071212
  2. LETAIRIS [Suspect]
     Route: 048
     Dates: start: 20071001, end: 20071030
  3. INDAPAMIDE [Concomitant]
     Route: 048
  4. FUROSEMIDE [Concomitant]
     Route: 048
  5. LYRICA [Concomitant]
     Route: 048
  6. REMODULIN [Concomitant]
     Indication: PULMONARY HYPERTENSION
     Route: 058
     Dates: start: 20071017
  7. PLAQUENIL [Concomitant]
     Route: 048
  8. PROTONIX [Concomitant]
     Route: 048
  9. TYLENOL (CAPLET) [Concomitant]
     Route: 048
  10. ARAVA [Concomitant]
     Route: 048
  11. SINGULAIR [Concomitant]
     Route: 048
  12. EXTRA STRENGTH TYLENOL [Concomitant]
     Route: 048
  13. OXYGEN [Concomitant]
     Route: 055
  14. ASPIRIN [Concomitant]
     Route: 048
  15. NOVOLIN 50/50 [Concomitant]
     Route: 058
  16. FOLIC ACID [Concomitant]
     Route: 048
  17. VITAMIN C 500 [Concomitant]
     Route: 048

REACTIONS (2)
  - BLISTER [None]
  - BLOOD COUNT ABNORMAL [None]
